FAERS Safety Report 7204047-1 (Version None)
Quarter: 2010Q4

REPORT INFORMATION
  Report Type: 
  Country: None (occurrence: None)
  Receive Date: 20101220
  Receipt Date: 20081014
  Transmission Date: 20110411
  Serious: Yes (Hospitalization)
  Sender: FDA-Public Use
  Company Number: 2007001456

PATIENT
  Age: 79 Year
  Sex: Female

DRUGS (14)
  1. ERLOTINIBI (ERLOTINIB) (TABLET) (ERLOTINIB) [Suspect]
     Indication: OVARIAN CANCER
     Dosage: 150 MG (150 MG, QD), ORAL, 150 MG (QD), ORAL
     Route: 048
     Dates: start: 20061122, end: 20070908
  2. ERLOTINIBI (ERLOTINIB) (TABLET) (ERLOTINIB) [Suspect]
     Indication: OVARIAN CANCER
     Dosage: 150 MG (150 MG, QD), ORAL, 150 MG (QD), ORAL
     Route: 048
     Dates: start: 20070726
  3. CARBOPLATIN [Concomitant]
  4. PACLITAXEL [Concomitant]
  5. DIGITOXIN TAB [Concomitant]
  6. PANTOPRAZOLE SODIUM [Concomitant]
  7. LASIX [Concomitant]
  8. DURAGESIC-100 [Concomitant]
  9. CITALOPRAM (CITALOPRAM) [Concomitant]
  10. MADOPAR (MADOPAR) [Concomitant]
  11. LYRICA [Concomitant]
  12. PRAXIPARIN (HEPARIN-FRACTION, CALCIUM SALT) [Concomitant]
  13. NOVALGIN (METAMIZOLE SODIUM) [Concomitant]
  14. LENDORM (BROTIZOLAM) [Concomitant]

REACTIONS (10)
  - ASTHENIA [None]
  - DEHYDRATION [None]
  - DEVICE RELATED INFECTION [None]
  - DYSPHAGIA [None]
  - KLEBSIELLA INFECTION [None]
  - PARKINSONISM [None]
  - PERFORMANCE STATUS DECREASED [None]
  - SPEECH DISORDER [None]
  - TRANSIENT ISCHAEMIC ATTACK [None]
  - URTICARIA [None]
